FAERS Safety Report 6882810-4 (Version None)
Quarter: 2010Q3

REPORT INFORMATION
  Report Type: 
  Country: None (occurrence: None)
  Receive Date: 20100727
  Receipt Date: 20100714
  Transmission Date: 20110219
  Serious: Yes (Other)
  Sender: FDA-Public Use
  Company Number: 8054243

PATIENT

DRUGS (1)
  1. KEPPRA [Suspect]
     Dosage: TRANSPLACENTAL
     Route: 064

REACTIONS (2)
  - GENITALIA EXTERNAL AMBIGUOUS [None]
  - MATERNAL DRUGS AFFECTING FOETUS [None]
